FAERS Safety Report 8776962 (Version 8)
Quarter: 2015Q4

REPORT INFORMATION
  Report Type: Spontaneous
  Country: US (occurrence: US)
  Receive Date: 20120911
  Receipt Date: 20151005
  Transmission Date: 20160305
  Serious: Yes (Life-Threatening, Hospitalization, Disabling, Other)
  Sender: FDA-Public Use
  Company Number: US-GLAXOSMITHKLINE-A0992657A

PATIENT
  Sex: Female
  Weight: 52.3 kg

DRUGS (10)
  1. FLOLAN [Suspect]
     Active Substance: EPOPROSTENOL SODIUM
     Dosage: 5.5 NG/KG/MINUTE, CO
  2. COUMADIN [Concomitant]
     Active Substance: WARFARIN SODIUM
     Route: 065
  3. LEVOTHYROXINE. [Concomitant]
     Active Substance: LEVOTHYROXINE
  4. REVATIO [Suspect]
     Active Substance: SILDENAFIL CITRATE
     Indication: PULMONARY ARTERIAL HYPERTENSION
     Dosage: 80 MG, TID
     Route: 048
     Dates: start: 20130524
  5. FLOLAN [Suspect]
     Active Substance: EPOPROSTENOL SODIUM
     Indication: PULMONARY ARTERIAL HYPERTENSION
     Dosage: 5 MG, CO
     Route: 065
     Dates: start: 19980408
  6. FLOLAN [Suspect]
     Active Substance: EPOPROSTENOL SODIUM
     Dosage: UNK
  7. LETAIRIS [Concomitant]
     Active Substance: AMBRISENTAN
     Route: 065
  8. DIGOXIN. [Concomitant]
     Active Substance: DIGOXIN
  9. CUBICIN [Concomitant]
     Active Substance: DAPTOMYCIN
  10. WARFARIN [Concomitant]
     Active Substance: WARFARIN

REACTIONS (7)
  - Joint swelling [Unknown]
  - Hip fracture [Recovered/Resolved]
  - Fall [Unknown]
  - Hip surgery [Recovered/Resolved]
  - Back injury [Unknown]
  - Diarrhoea [Unknown]
  - Anaemia [Unknown]

NARRATIVE: CASE EVENT DATE: 2012
